FAERS Safety Report 21632023 (Version 3)
Quarter: 2022Q4

REPORT INFORMATION
  Report Type: Spontaneous
  Country: US (occurrence: None)
  Receive Date: 20221123
  Receipt Date: 20221229
  Transmission Date: 20230113
  Serious: Yes (Other)
  Sender: FDA-Public Use
  Company Number: US-ROCHE-3218979

PATIENT
  Sex: Female

DRUGS (2)
  1. XELODA [Suspect]
     Active Substance: CAPECITABINE
     Indication: HER2 positive breast cancer
     Route: 048
  2. TUKYSA [Suspect]
     Active Substance: TUCATINIB
     Indication: HER2 positive breast cancer
     Route: 065

REACTIONS (5)
  - Skin discolouration [Unknown]
  - Macular degeneration [Unknown]
  - Blindness [Unknown]
  - Retinal tear [Unknown]
  - Visual impairment [Unknown]
